FAERS Safety Report 7188458-9 (Version None)
Quarter: 2010Q4

REPORT INFORMATION
  Report Type: 
  Country: None (occurrence: None)
  Receive Date: 20101222
  Receipt Date: 20100719
  Transmission Date: 20110411
  Serious: No
  Sender: FDA-Public Use
  Company Number: US-AMGEN-KDL425420

PATIENT

DRUGS (10)
  1. ENBREL [Suspect]
     Indication: RHEUMATOID ARTHRITIS
     Dosage: 50 MG, QWK
     Route: 058
     Dates: start: 20100601
  2. DULOXETIME HYDROCHLORIDE [Concomitant]
     Dosage: UNK UNK, UNK
  3. HYDROXYCHLOROQUINE SULFATE [Concomitant]
     Dosage: UNK UNK, UNK
  4. METHOTREXATE [Concomitant]
     Dosage: UNK UNK, UNK
  5. LEVOTHYROXINE SODIUM [Concomitant]
     Dosage: UNK UNK, UNK
  6. TOPROL-XL [Concomitant]
     Dosage: UNK UNK, UNK
  7. TRAMADOL [Concomitant]
     Dosage: UNK UNK, UNK
  8. LISINOPRIL AND HYDROCHLOROTHIAZIDE [Concomitant]
     Dosage: UNK UNK, UNK
  9. FOLIC ACID [Concomitant]
     Dosage: UNK UNK, UNK
  10. ERGOCALCIFEROL [Concomitant]
     Dosage: UNK UNK, UNK

REACTIONS (1)
  - ACNE [None]
